FAERS Safety Report 11236472 (Version 2)
Quarter: 2016Q4

REPORT INFORMATION
  Report Type: Spontaneous
  Country: US (occurrence: US)
  Receive Date: 20150702
  Receipt Date: 20161216
  Transmission Date: 20170206
  Serious: Yes (Other)
  Sender: FDA-Public Use
  Company Number: US-ASTRAZENECA-2013SE93064

PATIENT
  Age: 24839 Day
  Sex: Male
  Weight: 104.8 kg

DRUGS (5)
  1. BYDUREON [Suspect]
     Active Substance: EXENATIDE
     Indication: TYPE 2 DIABETES MELLITUS
     Route: 058
     Dates: start: 20120522
  2. BYDUREON [Suspect]
     Active Substance: EXENATIDE
     Indication: TYPE 2 DIABETES MELLITUS
     Route: 058
     Dates: start: 2014
  3. BYDUREON [Suspect]
     Active Substance: EXENATIDE
     Indication: TYPE 2 DIABETES MELLITUS
     Route: 058
  4. BYDUREON [Suspect]
     Active Substance: EXENATIDE
     Indication: TYPE 2 DIABETES MELLITUS
     Route: 058
     Dates: start: 20161207
  5. BYETTA [Suspect]
     Active Substance: EXENATIDE
     Route: 058

REACTIONS (9)
  - Abdominal distension [Unknown]
  - Underdose [Unknown]
  - Device malfunction [Unknown]
  - Ear neoplasm malignant [Unknown]
  - Injection site haemorrhage [Unknown]
  - Incorrect dose administered [Recovered/Resolved]
  - Renal impairment [Unknown]
  - Vomiting [Unknown]
  - Intentional product misuse [Unknown]

NARRATIVE: CASE EVENT DATE: 20120820
